FAERS Safety Report 14655450 (Version 3)
Quarter: 2018Q2

REPORT INFORMATION
  Report Type: Spontaneous
  Country: US (occurrence: US)
  Receive Date: 20180319
  Receipt Date: 20180510
  Transmission Date: 20180711
  Serious: Yes (Other)
  Sender: FDA-Public Use
  Company Number: US-SA-2018SA068964

PATIENT
  Sex: Female

DRUGS (1)
  1. ASPERCREME WITH LIDOCAINE NO-MESS APPLICATOR [Suspect]
     Active Substance: LIDOCAINE HYDROCHLORIDE
     Indication: ARTHRALGIA
     Route: 065

REACTIONS (7)
  - Chemical burn [Unknown]
  - Pain [Unknown]
  - Dermatitis contact [Unknown]
  - Burns second degree [Recovered/Resolved]
  - Skin discolouration [Unknown]
  - Contusion [Unknown]
  - Burning sensation [Unknown]
